FAERS Safety Report 18981340 (Version 1)
Quarter: 2021Q1

REPORT INFORMATION
  Report Type: Spontaneous
  Country: US (occurrence: US)
  Receive Date: 20210308
  Receipt Date: 20210308
  Transmission Date: 20210420
  Serious: Yes (Death)
  Sender: FDA-Public Use
  Company Number: US-ELI_LILLY_AND_COMPANY-US202103001743

PATIENT
  Sex: Male

DRUGS (1)
  1. BAMLANIVIMAB 700MG [Suspect]
     Active Substance: BAMLANIVIMAB
     Indication: SUSPECTED COVID-19
     Dosage: UNK, SINGLE
     Route: 065

REACTIONS (3)
  - Renal disorder [Fatal]
  - Liver disorder [Fatal]
  - Internal haemorrhage [Fatal]
